FAERS Safety Report 11116321 (Version 13)
Quarter: 2016Q3

REPORT INFORMATION
  Report Type: Report from Study
  Country: AT (occurrence: AT)
  Receive Date: 20150515
  Receipt Date: 20160909
  Transmission Date: 20161109
  Serious: Yes (Hospitalization, Other)
  Sender: FDA-Public Use
  Company Number: AT-INCYTE CORPORATION-2015IN001195

PATIENT
  Age: 73 Year
  Sex: Female
  Weight: 70 kg

DRUGS (249)
  1. EUTHYROX [Concomitant]
     Active Substance: LEVOTHYROXINE SODIUM
     Dosage: 1.25 DF QD (1 ? -0 -0)
  2. EUTHYROX [Concomitant]
     Active Substance: LEVOTHYROXINE SODIUM
     Dosage: 1.25 DF QD (1 ? -0 -0)
  3. NOMEXOR [Concomitant]
     Active Substance: NEBIVOLOL HYDROCHLORIDE
     Dosage: 5 MG, BID (1-0-1)
     Route: 065
  4. NOMEXOR [Concomitant]
     Active Substance: NEBIVOLOL HYDROCHLORIDE
     Dosage: 5 MG, BID (1-0-1)
     Route: 065
  5. NOMEXOR [Concomitant]
     Active Substance: NEBIVOLOL HYDROCHLORIDE
     Dosage: 5 MG, BID (1-0-1)
     Route: 065
     Dates: start: 20090424
  6. DIGIMERCK [Concomitant]
     Active Substance: DIGITOXIN
     Dosage: 0.1 MG, QD (1-0-0)
     Route: 065
  7. DIGIMERCK [Concomitant]
     Active Substance: DIGITOXIN
     Dosage: 0.1 MG, QD (1-0-0)
  8. DIGIMERCK [Concomitant]
     Active Substance: DIGITOXIN
     Dosage: 0.1 MG, QD (1-0-0)
  9. DAFLON//DIOSMIN [Concomitant]
     Dosage: 1 DF, UNK
  10. DAFLON//DIOSMIN [Concomitant]
     Dosage: 1 DF, UNK
  11. DAFLON//DIOSMIN [Concomitant]
     Dosage: 1 DF, UNK
  12. TEBOFORTAN [Concomitant]
     Active Substance: GINKGO
     Dosage: 1 DF, QD (0-1-0)
     Route: 065
  13. LASIX [Concomitant]
     Active Substance: FUROSEMIDE
     Dosage: 40 MG, BIW (2X WEEKLY 1-0-0)
  14. SPIRIVA [Concomitant]
     Active Substance: TIOTROPIUM BROMIDE MONOHYDRATE
     Dosage: 18 UG, QD (1-0-0)
  15. SPIRIVA [Concomitant]
     Active Substance: TIOTROPIUM BROMIDE MONOHYDRATE
     Dosage: 18 UG, QD (1-0-0)
  16. SPIRIVA [Concomitant]
     Active Substance: TIOTROPIUM BROMIDE MONOHYDRATE
     Dosage: 18 UG, QD (1-0-0)
  17. VALSARCOMP [Concomitant]
     Active Substance: HYDROCHLOROTHIAZIDE\VALSARTAN
     Dosage: 1 DF, QD (1-0-0)
  18. VALSARCOMP [Concomitant]
     Active Substance: HYDROCHLOROTHIAZIDE\VALSARTAN
     Dosage: 1 DF, QD (1-0-0)
  19. TRITTICO [Concomitant]
     Active Substance: TRAZODONE HYDROCHLORIDE
     Dosage: 150 MG, QD(0-0-0-1)
  20. PANTOPRAZOL [Concomitant]
     Active Substance: PANTOPRAZOLE SODIUM
     Dosage: 20 MG, BID (1-0-1)
     Route: 065
  21. ELOMEL [Concomitant]
     Dosage: 1000 ML, BID (1X1)
     Route: 042
  22. ELOMEL [Concomitant]
     Dosage: 1000 ML, BID (1X1)
     Route: 042
  23. COLDISTOP [Concomitant]
     Dosage: UNK
     Route: 045
  24. COLDISTOP [Concomitant]
     Dosage: UNK, TID
     Route: 045
  25. STERIMAR [Concomitant]
     Active Substance: SEA WATER
     Indication: PRODUCT USED FOR UNKNOWN INDICATION
     Dosage: 5X DAILY
     Route: 045
  26. STERIMAR [Concomitant]
     Active Substance: SEA WATER
     Dosage: 5 OT, QD
  27. MEFENAMIC-ACID [Concomitant]
     Active Substance: MEFENAMIC ACID
     Dosage: UNK
     Route: 005
  28. MEFENAMIC-ACID [Concomitant]
     Active Substance: MEFENAMIC ACID
     Dosage: 500 MG, TID
     Route: 005
  29. JAKAFI [Suspect]
     Active Substance: RUXOLITINIB
     Dosage: 5 MG, BID
     Route: 065
  30. SINTROM [Suspect]
     Active Substance: ACENOCOUMAROL
     Dosage: UNK
     Route: 065
     Dates: start: 200510
  31. EUTHYROX [Concomitant]
     Active Substance: LEVOTHYROXINE SODIUM
     Dosage: 1.25 DF QD (1 ? -0 -0)
  32. EUTHYROX [Concomitant]
     Active Substance: LEVOTHYROXINE SODIUM
     Dosage: 1.25 DF QD (1 ? -0 -0)
  33. NOMEXOR [Concomitant]
     Active Substance: NEBIVOLOL HYDROCHLORIDE
     Dosage: 5 MG, BID (1-0-1)
  34. NOMEXOR [Concomitant]
     Active Substance: NEBIVOLOL HYDROCHLORIDE
     Dosage: 5 MG, BID (1-0-1)
  35. DAFLON//DIOSMIN [Concomitant]
     Dosage: 1 DF, UNK
  36. DAFLON//DIOSMIN [Concomitant]
     Dosage: UNK DF, UNK
  37. TEBOFORTAN [Concomitant]
     Active Substance: GINKGO
     Dosage: UNK
  38. EFECTIN [Concomitant]
     Active Substance: VENLAFAXINE HYDROCHLORIDE
     Dosage: 75 MG, QD (1-0-0)
  39. EFECTIN [Concomitant]
     Active Substance: VENLAFAXINE HYDROCHLORIDE
     Dosage: 75 MG, QD (1-0-0)
  40. SPIRIVA [Concomitant]
     Active Substance: TIOTROPIUM BROMIDE MONOHYDRATE
     Indication: CHRONIC OBSTRUCTIVE PULMONARY DISEASE
     Dosage: 18 UG, QD (1-0-0)
     Route: 065
  41. SPIRIVA [Concomitant]
     Active Substance: TIOTROPIUM BROMIDE MONOHYDRATE
     Dosage: 18 UG, QD (1-0-0)
     Route: 065
  42. VALSARCOMP [Concomitant]
     Active Substance: HYDROCHLOROTHIAZIDE\VALSARTAN
     Dosage: 1 DF, QD (1-0-0)
     Route: 065
  43. VALSARCOMP [Concomitant]
     Active Substance: HYDROCHLOROTHIAZIDE\VALSARTAN
     Dosage: 1 DF, QD
  44. TRITTICO [Concomitant]
     Active Substance: TRAZODONE HYDROCHLORIDE
     Dosage: 150 MG, QD(0-0-0-1)
  45. TRITTICO [Concomitant]
     Active Substance: TRAZODONE HYDROCHLORIDE
     Dosage: 150 MG, QD(0-0-0-1)
  46. PANTOPRAZOL [Concomitant]
     Active Substance: PANTOPRAZOLE SODIUM
     Dosage: 20 MG, BID (1-0-1)
     Route: 065
  47. ELOMEL [Concomitant]
     Dosage: 1000 ML, BID (1X1)
     Route: 042
  48. COLDISTOP [Concomitant]
     Indication: PRODUCT USED FOR UNKNOWN INDICATION
     Dosage: OIL, UNK
     Route: 065
  49. MEFENAMIC-ACID [Concomitant]
     Active Substance: MEFENAMIC ACID
     Indication: PAIN
     Dosage: 500 MG, UPTO 3X DAILY (TID)
     Route: 065
  50. NEUPRO [Concomitant]
     Active Substance: ROTIGOTINE
     Indication: RESTLESS LEGS SYNDROME
     Dosage: UNK
     Route: 065
     Dates: start: 20130626
  51. EUTHYROX [Concomitant]
     Active Substance: LEVOTHYROXINE SODIUM
     Indication: PRODUCT USED FOR UNKNOWN INDICATION
     Dosage: 100 UG
     Route: 065
  52. EUTHYROX [Concomitant]
     Active Substance: LEVOTHYROXINE SODIUM
     Dosage: UNK
  53. NOMEXOR [Concomitant]
     Active Substance: NEBIVOLOL HYDROCHLORIDE
     Indication: HYPERTENSION
     Dosage: 5 MG, BID (1-0-1)
     Route: 065
  54. DAFLON//DIOSMIN [Concomitant]
     Dosage: 1 DF, UNK
  55. DAFLON//DIOSMIN [Concomitant]
     Dosage: 1 DF, UNK
  56. DAFLON//DIOSMIN [Concomitant]
     Dosage: 1 DF, UNK
  57. DAFLON//DIOSMIN [Concomitant]
     Dosage: 1 DF, BID
  58. TEBOFORTAN [Concomitant]
     Active Substance: GINKGO
     Dosage: 1 DF, QD (0-1-0)
     Route: 065
  59. TEBOFORTAN [Concomitant]
     Active Substance: GINKGO
     Dosage: 1 DF, QD (0-1-0)
  60. TEBOFORTAN [Concomitant]
     Active Substance: GINKGO
     Dosage: 1 DF, QD (0-1-0)
  61. TEBOFORTAN [Concomitant]
     Active Substance: GINKGO
     Dosage: 1 DF, QD (0-1-0)
  62. TEBOFORTAN [Concomitant]
     Active Substance: GINKGO
     Dosage: 1 DF, QD (0-1-0)
  63. SPIRIVA [Concomitant]
     Active Substance: TIOTROPIUM BROMIDE MONOHYDRATE
     Dosage: 18 UG, QD (1-0-0)
     Route: 065
  64. SPIRIVA [Concomitant]
     Active Substance: TIOTROPIUM BROMIDE MONOHYDRATE
     Dosage: UNK
     Route: 065
     Dates: start: 20061218
  65. VALSARCOMP [Concomitant]
     Active Substance: HYDROCHLOROTHIAZIDE\VALSARTAN
     Dosage: 1 DF, QD (1-0-0)
     Route: 065
  66. VALSARCOMP [Concomitant]
     Active Substance: HYDROCHLOROTHIAZIDE\VALSARTAN
     Dosage: 1 DF, QD (1-0-0)
     Route: 065
  67. VALSARCOMP [Concomitant]
     Active Substance: HYDROCHLOROTHIAZIDE\VALSARTAN
     Dosage: UNK
     Route: 065
  68. UROSIN [Concomitant]
     Active Substance: ALLOPURINOL
     Indication: PRODUCT USED FOR UNKNOWN INDICATION
     Dosage: 300 MG, QD (0-0-1)
     Route: 065
  69. PANTOPRAZOL [Concomitant]
     Active Substance: PANTOPRAZOLE SODIUM
     Dosage: 20 MG, BID (1-0-1)
  70. PANTOPRAZOL [Concomitant]
     Active Substance: PANTOPRAZOLE SODIUM
     Dosage: 20 MG, BID (1-0-1)
  71. ELOMEL [Concomitant]
     Dosage: 1000 ML, BID (1X1)
     Route: 042
  72. COLDISTOP [Concomitant]
     Dosage: UNK, TID
     Route: 045
  73. STERIMAR [Concomitant]
     Active Substance: SEA WATER
     Dosage: 5 OT, QD
     Route: 045
  74. STERIMAR [Concomitant]
     Active Substance: SEA WATER
     Dosage: 5 OT, QD
  75. STERIMAR [Concomitant]
     Active Substance: SEA WATER
     Dosage: 5 OT, QD
  76. CAUMADIN [Concomitant]
     Active Substance: WARFARIN SODIUM
     Dosage: UNK
     Route: 065
  77. MIFLONIDE [Concomitant]
     Active Substance: BUDESONIDE
     Dosage: UNK
     Route: 065
     Dates: start: 20140701
  78. EUTHYROX [Concomitant]
     Active Substance: LEVOTHYROXINE SODIUM
     Dosage: 1.25 DF QD (1 ? -0 -0)
  79. DIGIMERCK [Concomitant]
     Active Substance: DIGITOXIN
     Dosage: 0.1 MG, QD (1-0-0)
     Route: 065
  80. DIGIMERCK [Concomitant]
     Active Substance: DIGITOXIN
     Dosage: 0.1 MG, QD (1-0-0)
  81. DIGIMERCK [Concomitant]
     Active Substance: DIGITOXIN
     Dosage: 0.1 MG, QD (1-0-0)
     Route: 065
  82. TEBOFORTAN [Concomitant]
     Active Substance: GINKGO
     Dosage: 1 DF, QD (0-1-0)
  83. EFECTIN [Concomitant]
     Active Substance: VENLAFAXINE HYDROCHLORIDE
     Indication: PRODUCT USED FOR UNKNOWN INDICATION
     Dosage: UNKNOWN
     Route: 065
  84. EFECTIN [Concomitant]
     Active Substance: VENLAFAXINE HYDROCHLORIDE
     Dosage: 75 MG, QD (1-0-0)
     Route: 065
  85. LASIX [Concomitant]
     Active Substance: FUROSEMIDE
     Dosage: 40 MG, BIW (2X WEEKLY 1-0-0)
     Route: 065
  86. LASIX [Concomitant]
     Active Substance: FUROSEMIDE
     Dosage: 40 MG, BIW (2X WEEKLY 1-0-0)
  87. SPIRIVA [Concomitant]
     Active Substance: TIOTROPIUM BROMIDE MONOHYDRATE
     Dosage: 18 UG, QD (1-0-0)
  88. VALSARCOMP [Concomitant]
     Active Substance: HYDROCHLOROTHIAZIDE\VALSARTAN
     Dosage: 1 DF, QD (1-0-0)
     Route: 065
  89. VALSARCOMP [Concomitant]
     Active Substance: HYDROCHLOROTHIAZIDE\VALSARTAN
     Dosage: 1 DF, QD (1-0-0)
  90. VALSARCOMP [Concomitant]
     Active Substance: HYDROCHLOROTHIAZIDE\VALSARTAN
     Dosage: 1 DF, UNK
  91. UROSIN [Concomitant]
     Active Substance: ALLOPURINOL
     Indication: BLOOD UREA INCREASED
     Dosage: 300 MG, QD (0-0-1)
     Route: 065
  92. TRITTICO [Concomitant]
     Active Substance: TRAZODONE HYDROCHLORIDE
     Dosage: 150 MG, QD(0-0-0-1)
     Route: 065
  93. TRITTICO [Concomitant]
     Active Substance: TRAZODONE HYDROCHLORIDE
     Dosage: 150 MG, QD(0-0-0-1)
  94. PANTOPRAZOL [Concomitant]
     Active Substance: PANTOPRAZOLE SODIUM
     Dosage: 20 MG, BID (1-0-1)
     Route: 065
  95. PANTOPRAZOL [Concomitant]
     Active Substance: PANTOPRAZOLE SODIUM
     Dosage: 20 MG, BID (1-0-1)
     Route: 065
  96. ELOMEL [Concomitant]
     Dosage: 1000 ML, BID (1X1)
     Route: 042
  97. ELOMEL [Concomitant]
     Dosage: 1000 ML, BID (1X1)
     Route: 042
  98. COLDISTOP [Concomitant]
     Dosage: UNK, TID
     Route: 045
  99. MEFENAMIC-ACID [Concomitant]
     Active Substance: MEFENAMIC ACID
     Dosage: UNK
     Route: 005
  100. MEFENAMIC-ACID [Concomitant]
     Active Substance: MEFENAMIC ACID
     Dosage: UNK
     Route: 005
  101. MEFENAMIC-ACID [Concomitant]
     Active Substance: MEFENAMIC ACID
     Dosage: UNK MG, UNK
     Route: 005
  102. PANTOPRAZOLE [Concomitant]
     Active Substance: PANTOPRAZOLE SODIUM
     Indication: PRODUCT USED FOR UNKNOWN INDICATION
     Dosage: UNK
     Route: 065
     Dates: start: 20140505
  103. JAKAFI [Suspect]
     Active Substance: RUXOLITINIB
     Dosage: 10 MG, UNK
     Route: 065
     Dates: start: 20130828, end: 20140504
  104. JAKAFI [Suspect]
     Active Substance: RUXOLITINIB
     Dosage: 5 MG, UNK
     Route: 065
     Dates: start: 20140505, end: 20140617
  105. JAKAFI [Suspect]
     Active Substance: RUXOLITINIB
     Dosage: 5 MG, UNK
     Route: 065
     Dates: start: 20150302, end: 20150409
  106. EUTHYROX [Concomitant]
     Active Substance: LEVOTHYROXINE SODIUM
     Dosage: 1.25 DF QD (1 ? -0 -0)
  107. EUTHYROX [Concomitant]
     Active Substance: LEVOTHYROXINE SODIUM
     Dosage: 1.25 DF QD (1 ? -0 -0)
  108. EUTHYROX [Concomitant]
     Active Substance: LEVOTHYROXINE SODIUM
     Dosage: UNK
     Route: 065
     Dates: start: 20000517
  109. NOMEXOR [Concomitant]
     Active Substance: NEBIVOLOL HYDROCHLORIDE
     Dosage: 5 MG, BID (1-0-1)
     Route: 065
  110. NOMEXOR [Concomitant]
     Active Substance: NEBIVOLOL HYDROCHLORIDE
     Dosage: 5 MG, BID (1-0-1)
  111. NOMEXOR [Concomitant]
     Active Substance: NEBIVOLOL HYDROCHLORIDE
     Dosage: 5 MG, BID (1-0-1)
     Dates: start: 20090424
  112. DIGIMERCK [Concomitant]
     Active Substance: DIGITOXIN
     Indication: ATRIAL FIBRILLATION
     Dosage: 0.1 MG, QD (1-0-0)
     Route: 065
  113. DIGIMERCK [Concomitant]
     Active Substance: DIGITOXIN
     Dosage: 0.1 MG, QD (1-0-0)
  114. DAFLON//DIOSMIN [Concomitant]
     Indication: PRODUCT USED FOR UNKNOWN INDICATION
     Dosage: 1 DF, BID (1-0-1)
     Route: 065
  115. DAFLON//DIOSMIN [Concomitant]
     Dosage: 1 DF, UNK
  116. DAFLON//DIOSMIN [Concomitant]
     Dosage: 1 DF, UNK
  117. TEBOFORTAN [Concomitant]
     Active Substance: GINKGO
     Indication: PRODUCT USED FOR UNKNOWN INDICATION
     Dosage: UNKNOWN
     Route: 065
  118. TEBOFORTAN [Concomitant]
     Active Substance: GINKGO
     Dosage: 1 DF, QD (0-1-0)
     Route: 065
  119. EFECTIN [Concomitant]
     Active Substance: VENLAFAXINE HYDROCHLORIDE
     Dosage: 75 MG, QD (1-0-0)
     Route: 065
  120. EFECTIN [Concomitant]
     Active Substance: VENLAFAXINE HYDROCHLORIDE
     Dosage: 75 MG, QD (1-0-0)
  121. EFECTIN [Concomitant]
     Active Substance: VENLAFAXINE HYDROCHLORIDE
     Dosage: 75 MG, QD (1-0-0)
  122. LASIX [Concomitant]
     Active Substance: FUROSEMIDE
     Dosage: 40 MG, BIW (2X WEEKLY 1-0-0)
     Route: 065
  123. LASIX [Concomitant]
     Active Substance: FUROSEMIDE
     Dosage: 40 MG, BIW (2X WEEKLY 1-0-0)
  124. LASIX [Concomitant]
     Active Substance: FUROSEMIDE
     Dosage: 40 MG, BIW (2X WEEKLY 1-0-0)
  125. LASIX [Concomitant]
     Active Substance: FUROSEMIDE
     Dosage: 40 MG, BIW (2X WEEKLY 1-0-0)
  126. SPIRIVA [Concomitant]
     Active Substance: TIOTROPIUM BROMIDE MONOHYDRATE
     Dosage: 18 UG, QD (1-0-0)
     Route: 065
  127. VALSARCOMP [Concomitant]
     Active Substance: HYDROCHLOROTHIAZIDE\VALSARTAN
     Indication: HYPERTENSION
     Dosage: 1 DF, QD (1-0-0)
     Route: 065
  128. VALSARCOMP [Concomitant]
     Active Substance: HYDROCHLOROTHIAZIDE\VALSARTAN
     Dosage: UNK
     Route: 065
     Dates: start: 20130410
  129. UROSIN [Concomitant]
     Active Substance: ALLOPURINOL
     Dosage: UNK, QD
  130. TRITTICO [Concomitant]
     Active Substance: TRAZODONE HYDROCHLORIDE
     Dosage: 150 MG, QD(0-0-0-1)
     Route: 065
  131. TRITTICO [Concomitant]
     Active Substance: TRAZODONE HYDROCHLORIDE
     Dosage: 150 MG, QD(0-0-0-1)
     Route: 065
  132. TRITTICO [Concomitant]
     Active Substance: TRAZODONE HYDROCHLORIDE
     Dosage: 150 MG, QD(0-0-0-1)
  133. TRITTICO [Concomitant]
     Active Substance: TRAZODONE HYDROCHLORIDE
     Dosage: 150 MG, QD(0-0-0-1)
  134. PANTOPRAZOL [Concomitant]
     Active Substance: PANTOPRAZOLE SODIUM
     Indication: PRODUCT USED FOR UNKNOWN INDICATION
     Dosage: UNK
     Route: 065
  135. PANTOPRAZOL [Concomitant]
     Active Substance: PANTOPRAZOLE SODIUM
     Dosage: 20 MG, BID (1-0-1)
     Route: 065
  136. PANTOPRAZOL [Concomitant]
     Active Substance: PANTOPRAZOLE SODIUM
     Dosage: 20 MG, BID (1-0-1)
  137. PANTOPRAZOL [Concomitant]
     Active Substance: PANTOPRAZOLE SODIUM
     Dosage: 20 MG, BID (1-0-1)
  138. ELOMEL [Concomitant]
     Dosage: 1000 ML, BID (1X1)
     Route: 042
  139. ELOMEL [Concomitant]
     Dosage: 1000 ML, BID (1X1)
     Route: 042
  140. ELOMEL [Concomitant]
     Dosage: 1000 ML, BID (1X1)
     Route: 042
  141. ELOMEL [Concomitant]
     Dosage: 1000 ML, BID (1X1)
     Route: 042
  142. COLDISTOP [Concomitant]
     Dosage: UNK, TID
     Route: 045
  143. STERIMAR [Concomitant]
     Active Substance: SEA WATER
     Indication: PRODUCT USED FOR UNKNOWN INDICATION
     Dosage: SPRAY, UNK
     Route: 065
  144. STERIMAR [Concomitant]
     Active Substance: SEA WATER
     Dosage: 5 OT, QD
  145. STERIMAR [Concomitant]
     Active Substance: SEA WATER
     Dosage: 5 OT, QD
  146. CYKLOKAPRON [Concomitant]
     Active Substance: TRANEXAMIC ACID
     Indication: PRODUCT USED FOR UNKNOWN INDICATION
     Dosage: UNK
     Route: 042
     Dates: start: 20150202
  147. MEFENAMIC-ACID [Concomitant]
     Active Substance: MEFENAMIC ACID
     Dosage: UNK
     Route: 005
  148. MEFENAMIC-ACID [Concomitant]
     Active Substance: MEFENAMIC ACID
     Dosage: UNK
     Route: 005
  149. CLINDAMYCIN [Concomitant]
     Active Substance: CLINDAMYCIN\CLINDAMYCIN PHOSPHATE
     Indication: INFECTION
     Dosage: UNK
     Route: 065
     Dates: start: 20051104, end: 20151110
  150. MOXONIDIN [Concomitant]
     Active Substance: MOXONIDINE
     Dosage: UNK
     Route: 065
     Dates: start: 201302, end: 20150301
  151. CIPROFLOXACIN. [Concomitant]
     Active Substance: CIPROFLOXACIN
     Indication: NASOPHARYNGITIS
     Dosage: UNK
     Dates: start: 20150302, end: 20150308
  152. JAKAFI [Suspect]
     Active Substance: RUXOLITINIB
     Dosage: 10 MG, UNK
     Route: 065
     Dates: start: 20140618, end: 20150209
  153. DIGIMERCK [Concomitant]
     Active Substance: DIGITOXIN
     Dosage: 0.1 MG, QD (1-0-0)
  154. DIGIMERCK [Concomitant]
     Active Substance: DIGITOXIN
     Dosage: 0.1 MG, QD (1-0-0)
  155. DIGIMERCK [Concomitant]
     Active Substance: DIGITOXIN
     Dosage: 0.1 MG,
  156. DIGIMERCK [Concomitant]
     Active Substance: DIGITOXIN
     Dosage: 0.1 MG, QD
  157. TEBOFORTAN [Concomitant]
     Active Substance: GINKGO
     Dosage: UNK
     Route: 065
     Dates: start: 20071114
  158. EFECTIN [Concomitant]
     Active Substance: VENLAFAXINE HYDROCHLORIDE
     Dosage: 75 MG, QD (1-0-0)
     Route: 065
  159. EFECTIN [Concomitant]
     Active Substance: VENLAFAXINE HYDROCHLORIDE
     Dosage: 75 MG, QD (1-0-0)
  160. EFECTIN [Concomitant]
     Active Substance: VENLAFAXINE HYDROCHLORIDE
     Dosage: 75 MG, QD (1-0-0)
  161. LASIX [Concomitant]
     Active Substance: FUROSEMIDE
     Dosage: 40 MG, BIW (2X WEEKLY 1-0-0)
  162. SPIRIVA [Concomitant]
     Active Substance: TIOTROPIUM BROMIDE MONOHYDRATE
     Dosage: 18 UG, QD (1-0-0)
     Route: 065
  163. SPIRIVA [Concomitant]
     Active Substance: TIOTROPIUM BROMIDE MONOHYDRATE
     Dosage: 18 UG, QD (1-0-0)
  164. SPIRIVA [Concomitant]
     Active Substance: TIOTROPIUM BROMIDE MONOHYDRATE
     Dosage: 18 UG, QD (1-0-0)
     Route: 065
  165. TRITTICO [Concomitant]
     Active Substance: TRAZODONE HYDROCHLORIDE
     Dosage: 150 MG, QD(0-0-0-1)
     Route: 065
  166. TRITTICO [Concomitant]
     Active Substance: TRAZODONE HYDROCHLORIDE
     Dosage: 150 MG, QD(0-0-0-1)
  167. PANTOPRAZOL [Concomitant]
     Active Substance: PANTOPRAZOLE SODIUM
     Dosage: 20 MG, BID (1-0-1)
  168. ELOMEL [Concomitant]
     Indication: PRODUCT USED FOR UNKNOWN INDICATION
     Dosage: UNK
     Route: 065
  169. ELOMEL [Concomitant]
     Dosage: 1000 ML, BID (1X1)
     Route: 042
  170. ELOMEL [Concomitant]
     Dosage: 1000 ML, BID (1X1)
     Route: 042
  171. STERIMAR [Concomitant]
     Active Substance: SEA WATER
     Dosage: 5X DAILY
     Route: 045
  172. STERIMAR [Concomitant]
     Active Substance: SEA WATER
     Dosage: 5 OT, QD
  173. CAUMADIN [Concomitant]
     Active Substance: WARFARIN SODIUM
     Indication: PRODUCT USED FOR UNKNOWN INDICATION
     Dosage: UNK
     Route: 065
  174. EFFECTIN [Concomitant]
     Active Substance: VENLAFAXINE HYDROCHLORIDE
     Indication: DEPRESSION
     Dosage: UNK
     Route: 065
     Dates: start: 20090505
  175. MOXONIDIN [Concomitant]
     Active Substance: MOXONIDINE
     Indication: HYPERTENSION
     Dosage: UNK
     Route: 065
     Dates: start: 201302, end: 20150301
  176. JAKAFI [Suspect]
     Active Substance: RUXOLITINIB
     Indication: MYELOFIBROSIS
     Dosage: 10 MG, QD
     Route: 065
  177. JAKAFI [Suspect]
     Active Substance: RUXOLITINIB
     Dosage: 15 MG, UNK
     Route: 065
     Dates: start: 20130626, end: 20130827
  178. JAKAFI [Suspect]
     Active Substance: RUXOLITINIB
     Dosage: 5 MG, UNK
     Route: 065
     Dates: start: 20150210, end: 20150301
  179. JAKAFI [Suspect]
     Active Substance: RUXOLITINIB
     Dosage: UNK
     Route: 065
     Dates: start: 20150410
  180. EUTHYROX [Concomitant]
     Active Substance: LEVOTHYROXINE SODIUM
     Dosage: 1.25 DF QD (1 ? -0 -0)
  181. NOMEXOR [Concomitant]
     Active Substance: NEBIVOLOL HYDROCHLORIDE
     Indication: PRODUCT USED FOR UNKNOWN INDICATION
     Dosage: UNK
     Route: 065
     Dates: start: 20090424
  182. NOMEXOR [Concomitant]
     Active Substance: NEBIVOLOL HYDROCHLORIDE
     Dosage: 5 MG, BID (1-0-1)
  183. NOMEXOR [Concomitant]
     Active Substance: NEBIVOLOL HYDROCHLORIDE
     Dosage: 5 MG, BID (1-0-1)
  184. DIGIMERCK [Concomitant]
     Active Substance: DIGITOXIN
     Indication: PRODUCT USED FOR UNKNOWN INDICATION
     Dosage: UNKNOWN
     Route: 065
  185. DIGIMERCK [Concomitant]
     Active Substance: DIGITOXIN
     Dosage: UNK
     Route: 065
     Dates: start: 20110112
  186. DAFLON//DIOSMIN [Concomitant]
     Dosage: 1 DF, UNK
  187. TEBOFORTAN [Concomitant]
     Active Substance: GINKGO
     Dosage: 1 DF, QD (0-1-0)
     Route: 065
  188. TEBOFORTAN [Concomitant]
     Active Substance: GINKGO
     Dosage: 1 DF, QD (0-1-0)
  189. TEBOFORTAN [Concomitant]
     Active Substance: GINKGO
     Dosage: 1 DF, QD (0-1-0)
  190. EFECTIN [Concomitant]
     Active Substance: VENLAFAXINE HYDROCHLORIDE
     Dosage: 75 MG, QD (1-0-0)
  191. EFECTIN [Concomitant]
     Active Substance: VENLAFAXINE HYDROCHLORIDE
     Dosage: 75 MG, QD (1-0-0)
  192. LASIX [Concomitant]
     Active Substance: FUROSEMIDE
     Indication: PRODUCT USED FOR UNKNOWN INDICATION
     Dosage: UNKNOWN
     Route: 065
  193. LASIX [Concomitant]
     Active Substance: FUROSEMIDE
     Dosage: 40 MG, BIW (2X WEEKLY 1-0-0)
  194. SPIRIVA [Concomitant]
     Active Substance: TIOTROPIUM BROMIDE MONOHYDRATE
     Dosage: 18 ?G, UNK
  195. VALSARCOMP [Concomitant]
     Active Substance: HYDROCHLOROTHIAZIDE\VALSARTAN
     Indication: PRODUCT USED FOR UNKNOWN INDICATION
     Dosage: UNKNOWN
     Route: 065
  196. VALSARCOMP [Concomitant]
     Active Substance: HYDROCHLOROTHIAZIDE\VALSARTAN
     Dosage: 1 DF, QD (1-0-0)
     Route: 065
  197. VALSARCOMP [Concomitant]
     Active Substance: HYDROCHLOROTHIAZIDE\VALSARTAN
     Dosage: 1 DF, QD (1-0-0)
  198. UROSIN [Concomitant]
     Active Substance: ALLOPURINOL
     Dosage: UNK
     Route: 065
     Dates: start: 20140505
  199. UROSIN [Concomitant]
     Active Substance: ALLOPURINOL
     Dosage: UNK
  200. TRITTICO [Concomitant]
     Active Substance: TRAZODONE HYDROCHLORIDE
     Indication: PRODUCT USED FOR UNKNOWN INDICATION
     Dosage: UNKNOWN
     Route: 065
  201. ELOMEL [Concomitant]
     Dosage: 1000 ML, BID (1X1)
     Route: 042
  202. COLDISTOP [Concomitant]
     Dosage: UNK, TID
     Route: 045
  203. COLDISTOP [Concomitant]
     Dosage: UNK, TID
     Route: 045
  204. STERIMAR [Concomitant]
     Active Substance: SEA WATER
     Dosage: 5X DAILY
     Route: 045
  205. STERIMAR [Concomitant]
     Active Substance: SEA WATER
     Dosage: 5X DAILY
     Route: 045
  206. STERIMAR [Concomitant]
     Active Substance: SEA WATER
     Dosage: 5 OT, QD
  207. MEFENAMIC-ACID [Concomitant]
     Active Substance: MEFENAMIC ACID
     Dosage: UNK
     Route: 005
  208. OLEOVIT D3 [Concomitant]
     Active Substance: CHOLECALCIFEROL
     Indication: VITAMIN D DEFICIENCY
     Dosage: UNK
     Route: 065
     Dates: start: 20131217, end: 20140504
  209. JAKAFI [Suspect]
     Active Substance: RUXOLITINIB
     Dosage: UNK
     Route: 065
     Dates: start: 20130218
  210. SINTROM [Suspect]
     Active Substance: ACENOCOUMAROL
     Indication: ATRIAL FIBRILLATION
     Dosage: 0.5 DF,0.5 TABLET DAILY 6X/WEEK, 1 TABLET / WEEK  (TUESDAYS)
     Route: 065
  211. EUTHYROX [Concomitant]
     Active Substance: LEVOTHYROXINE SODIUM
     Dosage: 1.25 DF QD (1 ? -0 -0)
  212. NOMEXOR [Concomitant]
     Active Substance: NEBIVOLOL HYDROCHLORIDE
     Dosage: 5 MG, BID (1-0-1)
     Route: 065
  213. DIGIMERCK [Concomitant]
     Active Substance: DIGITOXIN
     Dosage: 0.1 MG, QD (1-0-0)
     Route: 065
  214. DIGIMERCK [Concomitant]
     Active Substance: DIGITOXIN
     Dosage: 0.1 MG, QD (1-0-0)
     Route: 065
  215. DAFLON//DIOSMIN [Concomitant]
     Dosage: 1 UNK, UNK
  216. TEBOFORTAN [Concomitant]
     Active Substance: GINKGO
     Dosage: 1 DF, QD (0-1-0)
     Route: 065
  217. TEBOFORTAN [Concomitant]
     Active Substance: GINKGO
     Dosage: 1 DF, QD (0-1-0)
  218. TEBOFORTAN [Concomitant]
     Active Substance: GINKGO
     Dosage: 1 DF, QD (0-1-0)
  219. EFECTIN [Concomitant]
     Active Substance: VENLAFAXINE HYDROCHLORIDE
     Dosage: 75 MG, QD (1-0-0)
     Route: 065
  220. EFECTIN [Concomitant]
     Active Substance: VENLAFAXINE HYDROCHLORIDE
     Dosage: 75 MG, QD (1-0-0)
     Route: 065
  221. EFECTIN [Concomitant]
     Active Substance: VENLAFAXINE HYDROCHLORIDE
     Dosage: 75 MG, QD (1-0-0)
  222. EFECTIN [Concomitant]
     Active Substance: VENLAFAXINE HYDROCHLORIDE
     Dosage: UNK
  223. LASIX [Concomitant]
     Active Substance: FUROSEMIDE
     Dosage: 40 MG, BIW (2X WEEKLY 1-0-0)
     Route: 065
  224. LASIX [Concomitant]
     Active Substance: FUROSEMIDE
     Dosage: 40 MG, BIW (2X WEEKLY 1-0-0)
     Route: 065
  225. LASIX [Concomitant]
     Active Substance: FUROSEMIDE
     Dosage: 40 MG, BIW (2X WEEKLY 1-0-0)
     Route: 065
  226. LASIX [Concomitant]
     Active Substance: FUROSEMIDE
     Dosage: 40 MG, BIW (2X WEEKLY 1-0-0)
  227. LASIX [Concomitant]
     Active Substance: FUROSEMIDE
     Dosage: 40 MG, BIW (2X WEEKLY 1-0-0)
  228. SPIRIVA [Concomitant]
     Active Substance: TIOTROPIUM BROMIDE MONOHYDRATE
     Indication: PRODUCT USED FOR UNKNOWN INDICATION
     Dosage: UNKNOWN
     Route: 065
  229. SPIRIVA [Concomitant]
     Active Substance: TIOTROPIUM BROMIDE MONOHYDRATE
     Dosage: 18 UG, QD (1-0-0)
  230. SPIRIVA [Concomitant]
     Active Substance: TIOTROPIUM BROMIDE MONOHYDRATE
     Dosage: 18 ?G, QD
  231. VALSARCOMP [Concomitant]
     Active Substance: HYDROCHLOROTHIAZIDE\VALSARTAN
     Dosage: 1 DF, QD (1-0-0)
  232. VALSARCOMP [Concomitant]
     Active Substance: HYDROCHLOROTHIAZIDE\VALSARTAN
     Dosage: 1 DF, QD (1-0-0)
  233. TRITTICO [Concomitant]
     Active Substance: TRAZODONE HYDROCHLORIDE
     Dosage: 150 MG, QD(0-0-0-1)
     Route: 065
  234. TRITTICO [Concomitant]
     Active Substance: TRAZODONE HYDROCHLORIDE
     Dosage: 150 MG, QD(0-0-0-1)
  235. TRITTICO [Concomitant]
     Active Substance: TRAZODONE HYDROCHLORIDE
     Dosage: 150 MG, QD(0-0-0-1)
  236. PANTOPRAZOL [Concomitant]
     Active Substance: PANTOPRAZOLE SODIUM
     Dosage: 20 MG, BID (1-0-1)
  237. PANTOPRAZOL [Concomitant]
     Active Substance: PANTOPRAZOLE SODIUM
     Dosage: 20 MG, BID (1-0-1)
  238. PANTOPRAZOL [Concomitant]
     Active Substance: PANTOPRAZOLE SODIUM
     Dosage: 20 MG, BID (1-0-1)
  239. PANTOPRAZOL [Concomitant]
     Active Substance: PANTOPRAZOLE SODIUM
     Dosage: 20 MG, BID (1-0-1)
  240. ELOMEL [Concomitant]
     Dosage: 1000 ML, BID (1X1)
     Route: 042
  241. COLDISTOP [Concomitant]
     Dosage: UNK, TID
     Route: 045
  242. COLDISTOP [Concomitant]
     Dosage: UNK, TID
     Route: 045
  243. STERIMAR [Concomitant]
     Active Substance: SEA WATER
     Dosage: 5X DAILY
     Route: 045
  244. STERIMAR [Concomitant]
     Active Substance: SEA WATER
     Dosage: 5X DAILY
     Route: 045
  245. MIFLONIDE [Concomitant]
     Active Substance: BUDESONIDE
     Indication: CHRONIC OBSTRUCTIVE PULMONARY DISEASE
     Dosage: UNK
     Route: 065
     Dates: start: 200711, end: 20140225
  246. PANTOPRAZOLE [Concomitant]
     Active Substance: PANTOPRAZOLE SODIUM
     Dosage: UNK
     Route: 065
     Dates: start: 20140505
  247. PANTOPRAZOLE [Concomitant]
     Active Substance: PANTOPRAZOLE SODIUM
     Dosage: UNK
     Route: 065
     Dates: start: 20140505
  248. EXFORGE [Concomitant]
     Active Substance: AMLODIPINE BESYLATE\VALSARTAN
     Indication: HYPERTENSION
     Dosage: UNK
     Route: 065
     Dates: start: 20150831
  249. PROSPAN [Concomitant]
     Active Substance: IVY EXTRACT
     Indication: COUGH
     Dosage: UNK
     Route: 065
     Dates: start: 20150831

REACTIONS (45)
  - General physical health deterioration [Recovered/Resolved]
  - Fatigue [Unknown]
  - Hypotension [Unknown]
  - Cholecystitis [Unknown]
  - Bronchitis [Unknown]
  - Ventricular arrhythmia [Unknown]
  - Urinary retention [Unknown]
  - Polyneuropathy [Unknown]
  - Lymphocyte count increased [Unknown]
  - Red blood cell count increased [Unknown]
  - Diarrhoea [Unknown]
  - Epistaxis [Recovered/Resolved]
  - Visual impairment [Unknown]
  - Urethral prolapse [Unknown]
  - Haemoglobin decreased [Unknown]
  - Pleural effusion [Unknown]
  - C-reactive protein increased [Unknown]
  - Asthenia [Unknown]
  - Activated partial thromboplastin time prolonged [Unknown]
  - Glomerular filtration rate decreased [Unknown]
  - Cardiac failure [Unknown]
  - Hypothyroidism [Unknown]
  - Mitral valve incompetence [Unknown]
  - Aortic arteriosclerosis [Unknown]
  - Left atrial enlargement [Unknown]
  - Blood urea increased [Unknown]
  - Dizziness [Unknown]
  - Faeces soft [Unknown]
  - Hypertonia [Unknown]
  - Atrial fibrillation [Unknown]
  - Hepatomegaly [Unknown]
  - Scoliosis [Unknown]
  - Ascites [Unknown]
  - Renal cyst [Unknown]
  - Tricuspid valve incompetence [Unknown]
  - Thrombocytosis [Recovering/Resolving]
  - Pain [Unknown]
  - Platelet count increased [Unknown]
  - Nasopharyngitis [Unknown]
  - Blood creatinine increased [Unknown]
  - Hyperkalaemia [Unknown]
  - Cough [Unknown]
  - Gallbladder enlargement [Unknown]
  - Gastrointestinal haemorrhage [Recovered/Resolved]
  - Dysuria [Unknown]

NARRATIVE: CASE EVENT DATE: 20130626
